FAERS Safety Report 25157849 (Version 1)
Quarter: 2025Q2

REPORT INFORMATION
  Report Type: Spontaneous
  Country: US (occurrence: US)
  Receive Date: 20250403
  Receipt Date: 20250403
  Transmission Date: 20250717
  Serious: No
  Sender: ELI LILLY AND CO
  Company Number: US-ELI_LILLY_AND_COMPANY-US202503021835

PATIENT
  Age: 68 Year
  Sex: Female

DRUGS (8)
  1. MOUNJARO [Suspect]
     Active Substance: TIRZEPATIDE
     Indication: Type 2 diabetes mellitus
     Route: 065
  2. MOUNJARO [Suspect]
     Active Substance: TIRZEPATIDE
     Indication: Type 2 diabetes mellitus
     Route: 065
  3. MOUNJARO [Suspect]
     Active Substance: TIRZEPATIDE
     Indication: Type 2 diabetes mellitus
     Route: 065
  4. MOUNJARO [Suspect]
     Active Substance: TIRZEPATIDE
     Indication: Type 2 diabetes mellitus
     Route: 065
  5. BASAGLAR [Suspect]
     Active Substance: INSULIN GLARGINE
     Indication: Diabetes mellitus
     Dosage: 24 U, DAILY (NIGHT)
     Route: 065
     Dates: start: 202409
  6. INSULIN ASPART [Suspect]
     Active Substance: INSULIN ASPART
     Indication: Diabetes mellitus
     Dosage: 5 U, EACH MORNING (AFTER BREAFAST)
     Route: 065
  7. INSULIN ASPART [Suspect]
     Active Substance: INSULIN ASPART
     Dosage: 8 U, EACH EVENING (SUPPER)
     Route: 065
  8. INSULIN ASPART [Suspect]
     Active Substance: INSULIN ASPART
     Dosage: 6 U, EACH EVENING (NIGHT)
     Route: 065

REACTIONS (3)
  - Incorrect dose administered [Unknown]
  - Weight increased [Unknown]
  - Constipation [Unknown]
